FAERS Safety Report 8490876-3 (Version None)
Quarter: 2012Q2

REPORT INFORMATION
  Report Type: 
  Country: None (occurrence: None)
  Receive Date: 20120628
  Receipt Date: 20120628
  Transmission Date: 20120825
  Serious: Yes (Other)
  Sender: FDA-Public Use
  Company Number: None

PATIENT
  Sex: Female
  Weight: 63.5036 kg

DRUGS (1)
  1. SULFAMETHOXAZOLE AND TRIMETHOPRIM [Suspect]
     Indication: URINARY TRACT INFECTION
     Dosage: 1 TABLET TWICE DAILY 800/160
     Dates: start: 20120530, end: 20120531

REACTIONS (17)
  - CONTUSION [None]
  - EYE SWELLING [None]
  - PYREXIA [None]
  - FATIGUE [None]
  - OEDEMA PERIPHERAL [None]
  - PSYCHOTIC DISORDER [None]
  - LACRIMATION INCREASED [None]
  - RASH [None]
  - HEADACHE [None]
  - ASTHENIA [None]
  - INSOMNIA [None]
  - HYPOAESTHESIA [None]
  - HEART RATE INCREASED [None]
  - DYSPNOEA [None]
  - VERTIGO [None]
  - URTICARIA [None]
  - ARTHRALGIA [None]
